FAERS Safety Report 4805209-0 (Version None)
Quarter: 2005Q4

REPORT INFORMATION
  Report Type: 
  Country: None (occurrence: None)
  Receive Date: 20051018
  Receipt Date: 20050921
  Transmission Date: 20060501
  Serious: Yes (Hospitalization)
  Sender: FDA-Public Use
  Company Number: 13117106

PATIENT
  Age: 67 Year
  Sex: Male

DRUGS (4)
  1. CETUXIMAB [Suspect]
     Indication: COLON CANCER
     Dosage: 250 MILLIGRAM/SQ. METER 1/1 WEEK
     Route: 042
     Dates: start: 20050830, end: 20050830
  2. OXALIPLATIN [Suspect]
     Indication: COLON CANCER
     Dosage: 85 MILLIGRAM/SQ. METER 1/2 WEEK
     Route: 042
     Dates: start: 20050816, end: 20050816
  3. LEUCOVORIN CALCIUM [Suspect]
     Indication: COLON CANCER
     Dosage: 400 MILLIGRAM/SQ. METER 1/2 WEEK
     Route: 042
     Dates: start: 20050816, end: 20050816
  4. FLUOROURACIL [Suspect]
     Indication: COLON CANCER
     Dosage: 2400 MILLIGRAM /SQ. METER 1/2 WEEK
     Route: 042
     Dates: start: 20050816, end: 20050818

REACTIONS (2)
  - DIZZINESS [None]
  - VISUAL DISTURBANCE [None]
